FAERS Safety Report 5523052-4 (Version None)
Quarter: 2007Q4

REPORT INFORMATION
  Report Type: 
  Country: None (occurrence: None)
  Receive Date: 20071119
  Receipt Date: 20071119
  Transmission Date: 20080405
  Serious: No
  Sender: FDA-Public Use
  Company Number: None

PATIENT
  Age: 56 Year
  Sex: Male

DRUGS (2)
  1. ENOXAPARIN SODIUM [Suspect]
     Indication: DEEP VEIN THROMBOSIS
     Dosage: 80MG BID SQ
     Route: 058
     Dates: start: 20071016, end: 20071123
  2. WARFARIN SODIUM [Suspect]
     Dosage: 7.5MG EVERY DAY PO
     Route: 048
     Dates: start: 19991101, end: 20071023

REACTIONS (1)
  - INTERNATIONAL NORMALISED RATIO ABNORMAL [None]
